FAERS Safety Report 25185978 (Version 1)
Quarter: 2025Q2

REPORT INFORMATION
  Report Type: Spontaneous
  Country: US (occurrence: US)
  Receive Date: 20250410
  Receipt Date: 20250410
  Transmission Date: 20250716
  Serious: No
  Sender: MERCK SHARP AND DOHME
  Company Number: US-009507513-2262824

PATIENT
  Sex: Male

DRUGS (8)
  1. WINREVAIR [Suspect]
     Active Substance: SOTATERCEPT-CSRK
  2. WINREVAIR [Suspect]
     Active Substance: SOTATERCEPT-CSRK
  3. WINREVAIR [Suspect]
     Active Substance: SOTATERCEPT-CSRK
  4. WINREVAIR [Suspect]
     Active Substance: SOTATERCEPT-CSRK
  5. SELEXIPAG [Concomitant]
     Active Substance: SELEXIPAG
  6. BOSENTAN [Concomitant]
     Active Substance: BOSENTAN
  7. SILDENAFIL [Concomitant]
     Active Substance: SILDENAFIL
  8. OXYGEN [Concomitant]
     Active Substance: OXYGEN

REACTIONS (2)
  - Haemoglobin abnormal [Unknown]
  - Platelet count abnormal [Unknown]
